FAERS Safety Report 5748810-2 (Version None)
Quarter: 2008Q2

REPORT INFORMATION
  Report Type: 
  Country: None (occurrence: None)
  Receive Date: 20080521
  Receipt Date: 20080512
  Transmission Date: 20081010
  Serious: Yes (Disabling)
  Sender: FDA-Public Use
  Company Number: GXKR2008GB04097

PATIENT
  Age: 72 Year
  Sex: Male
  Weight: 97 kg

DRUGS (6)
  1. DILTIAZEM [Suspect]
     Dates: start: 20080220, end: 20080307
  2. SIMVASTATIN [Suspect]
     Indication: ATRIAL FIBRILLATION
     Dosage: 40 MG, QD
     Dates: start: 20080220, end: 20080307
  3. WARFARIN SODIUM [Suspect]
     Indication: ATRIAL FIBRILLATION
     Dates: start: 20080325
  4. LOSARTAN POTASSIUM [Suspect]
     Indication: CEREBROVASCULAR DISORDER
     Dosage: 50 MG, QD,
     Dates: start: 20080205, end: 20080307
  5. ACETYLSALICYLIC ACID SRT [Concomitant]
  6. LERCANIDIPINE [Concomitant]

REACTIONS (2)
  - EYE INFLAMMATION [None]
  - RASH GENERALISED [None]
